FAERS Safety Report 17147254 (Version 6)
Quarter: 2020Q2

REPORT INFORMATION
  Report Type: Spontaneous
  Country: BR (occurrence: BR)
  Receive Date: 20191212
  Receipt Date: 20200617
  Transmission Date: 20200713
  Serious: Yes (Other)
  Sender: FDA-Public Use
  Company Number: BR-GLAXOSMITHKLINE-BR2019AMR223467

PATIENT
  Age: 58 Year
  Sex: Female

DRUGS (1)
  1. NUCALA [Suspect]
     Active Substance: MEPOLIZUMAB
     Indication: ASTHMA
     Dosage: 100 MG
     Dates: start: 20191129

REACTIONS (11)
  - Tooth injury [Unknown]
  - Fatigue [Unknown]
  - Asthmatic crisis [Recovering/Resolving]
  - Product dose omission [Unknown]
  - Dyspnoea [Unknown]
  - Productive cough [Unknown]
  - Therapeutic product effect incomplete [Unknown]
  - Cough [Not Recovered/Not Resolved]
  - Device breakage [Unknown]
  - Dental discomfort [Unknown]
  - Social problem [Unknown]

NARRATIVE: CASE EVENT DATE: 20191210
